FAERS Safety Report 5060459-6 (Version None)
Quarter: 2006Q3

REPORT INFORMATION
  Report Type: 
  Country: None (occurrence: None)
  Receive Date: 20060720
  Receipt Date: 20060710
  Transmission Date: 20061208
  Serious: Yes (Hospitalization)
  Sender: FDA-Public Use
  Company Number: 2006-02853

PATIENT
  Age: 67 Year
  Sex: Male
  Weight: 113.4 kg

DRUGS (14)
  1. LORAZEPAM [Suspect]
     Indication: ENDOCRINE PANCREATIC DISORDER
     Dosage: 1 MG Q2W, ORAL
     Route: 048
     Dates: start: 20060411, end: 20060425
  2. LORAZEPAM [Suspect]
     Indication: PANCREATIC NEOPLASM
     Dosage: 1 MG Q2W, ORAL
     Route: 048
     Dates: start: 20060411, end: 20060425
  3. OXALIPLATIN (OXALIPLATIN) SOLUTION, 85MG/M2 [Suspect]
     Indication: ENDOCRINE PANCREATIC DISORDER
     Dosage: 200 MG Q2W, INTRAVENOUS
     Route: 042
     Dates: start: 20060425, end: 20060425
  4. BEVACIZUMAB (BEVACIZUMAB) SOLUTION, 5MG/M2 [Suspect]
     Indication: ENDOCRINE PANCREATIC DISORDER
     Dosage: 5MG/KG EVERY TWO WEEKS, INTRAVENOUS
     Route: 042
     Dates: start: 20060425, end: 20060425
  5. FLUOROURACIL [Suspect]
     Indication: ENDOCRINE PANCREATIC DISORDER
     Dosage: 400MG/M2 + 1200MG/M2 EVERY 2WKS, INTRAVENOUS
     Route: 042
     Dates: start: 20060425, end: 20060425
  6. FLUOROURACIL [Suspect]
     Indication: PANCREATIC NEOPLASM
     Dosage: 400MG/M2 + 1200MG/M2 EVERY 2WKS, INTRAVENOUS
     Route: 042
     Dates: start: 20060425, end: 20060425
  7. LEUCOVORIN (FOLINIC ACID) SOLUTION, 200MG/M2 [Suspect]
     Indication: ENDOCRINE PANCREATIC DISORDER
     Dosage: 200 MG/M2 EVERY TWO WEEKS, INTRAVENOUS
     Route: 042
     Dates: start: 20060425, end: 20060425
  8. DEXAMETHASONE [Suspect]
     Indication: ENDOCRINE PANCREATIC DISORDER
     Dosage: 20 MG Q2W, INTRAVENOUS
     Route: 042
     Dates: start: 20060411, end: 20060411
  9. GRANISETRON  HCL [Suspect]
     Indication: ENDOCRINE PANCREATIC DISORDER
     Dosage: 1200 MCG Q2W, INTRAVENOUS
     Route: 042
     Dates: start: 20060411, end: 20060411
  10. PANTOPRAZOLE SODIUM [Concomitant]
  11. OCTREOTIDE ACETATE [Concomitant]
  12. D10 SOLUTION [Concomitant]
  13. LAR [Concomitant]
  14. ACETYLSALICYLIC ACID SRT [Concomitant]

REACTIONS (13)
  - ABDOMINAL PAIN UPPER [None]
  - ASPARTATE AMINOTRANSFERASE INCREASED [None]
  - CHILLS [None]
  - DEHYDRATION [None]
  - DIARRHOEA [None]
  - FATIGUE [None]
  - FLATULENCE [None]
  - HYPOAESTHESIA [None]
  - HYPOTENSION [None]
  - PAIN IN EXTREMITY [None]
  - PARAESTHESIA [None]
  - STOMATITIS [None]
  - VOMITING [None]
